FAERS Safety Report 9820222 (Version 1)
Quarter: 2014Q1

REPORT INFORMATION
  Report Type: Spontaneous
  Country: US (occurrence: None)
  Receive Date: 20140113
  Receipt Date: 20140113
  Transmission Date: 20141002
  Serious: Yes (Disabling)
  Sender: FDA-Public Use
  Company Number: None

PATIENT
  Age: 46 Year
  Sex: Female
  Weight: 68.04 kg

DRUGS (2)
  1. CYMBALTA [Suspect]
     Indication: NEURALGIA
     Dosage: 1 CAPSULE, ONCE DAILY, TAKEN BY MOUTH
     Route: 048
     Dates: start: 20120614, end: 20140105
  2. CYMBALTA [Suspect]
     Indication: SPINAL COLUMN STENOSIS
     Dosage: 1 CAPSULE, ONCE DAILY, TAKEN BY MOUTH
     Route: 048
     Dates: start: 20120614, end: 20140105

REACTIONS (13)
  - Paraesthesia [None]
  - Visual impairment [None]
  - Eye disorder [None]
  - Drug dose omission [None]
  - Tinnitus [None]
  - Nausea [None]
  - Vertigo [None]
  - Headache [None]
  - Decreased appetite [None]
  - Balance disorder [None]
  - Malaise [None]
  - Lethargy [None]
  - Impaired driving ability [None]
